FAERS Safety Report 15775122 (Version 1)
Quarter: 2018Q4

REPORT INFORMATION
  Report Type: Report from Study
  Country: JP (occurrence: JP)
  Receive Date: 20181231
  Receipt Date: 20181231
  Transmission Date: 20190205
  Serious: Yes (Other)
  Sender: FDA-Public Use
  Company Number: JP-ROCHE-2234826

PATIENT
  Age: 55 Year
  Sex: Male
  Weight: 48 kg

DRUGS (22)
  1. SOLU-MEDROL [Concomitant]
     Active Substance: METHYLPREDNISOLONE SODIUM SUCCINATE
     Indication: KIDNEY TRANSPLANT REJECTION
     Route: 042
     Dates: start: 20171214, end: 20171214
  2. DOXAZOSIN [Concomitant]
     Active Substance: DOXAZOSIN\DOXAZOSIN MESYLATE
     Indication: HYPERTENSION
     Route: 048
     Dates: start: 20171213
  3. SODIUM BICARBONATE. [Concomitant]
     Active Substance: SODIUM BICARBONATE
     Indication: TUBULOINTERSTITIAL NEPHRITIS
     Route: 048
     Dates: start: 20171208
  4. FERROUS CITRATE [Concomitant]
     Active Substance: FERROUS CITRATE
     Indication: ANAEMIA
     Route: 048
     Dates: start: 20171130, end: 20171222
  5. FERROUS CITRATE [Concomitant]
     Active Substance: FERROUS CITRATE
     Route: 048
     Dates: start: 20171224, end: 20180213
  6. MYCOPHENOLATE MOFETIL. [Concomitant]
     Active Substance: MYCOPHENOLATE MOFETIL
     Route: 048
     Dates: start: 20171215, end: 20171226
  7. CANDESARTAN. [Concomitant]
     Active Substance: CANDESARTAN
     Indication: HYPERTENSION
     Route: 048
     Dates: start: 20171213
  8. EVEROLIMUS. [Concomitant]
     Active Substance: EVEROLIMUS
     Indication: KIDNEY TRANSPLANT REJECTION
     Route: 048
     Dates: start: 20171201
  9. RITUXIMAB. [Suspect]
     Active Substance: RITUXIMAB
     Indication: KIDNEY TRANSPLANT REJECTION
     Route: 041
     Dates: start: 20171120, end: 20171120
  10. MYCOPHENOLATE MOFETIL. [Concomitant]
     Active Substance: MYCOPHENOLATE MOFETIL
     Route: 048
     Dates: start: 20171227, end: 20180403
  11. MYCOPHENOLATE MOFETIL. [Concomitant]
     Active Substance: MYCOPHENOLATE MOFETIL
     Route: 048
     Dates: start: 20180404
  12. DAIPHEN [Concomitant]
     Active Substance: SULFAMETHOXAZOLE\TRIMETHOPRIM
     Indication: INFECTION PROPHYLAXIS
     Route: 048
     Dates: start: 20171224, end: 20180213
  13. SOLU-MEDROL [Concomitant]
     Active Substance: METHYLPREDNISOLONE SODIUM SUCCINATE
     Route: 042
     Dates: start: 20171215, end: 20171216
  14. MYCOPHENOLATE MOFETIL. [Concomitant]
     Active Substance: MYCOPHENOLATE MOFETIL
     Indication: KIDNEY TRANSPLANT REJECTION
     Route: 048
     Dates: start: 20171201, end: 20171214
  15. BASILIXIMAB [Concomitant]
     Active Substance: BASILIXIMAB
     Route: 042
     Dates: start: 20171218, end: 20171218
  16. CERTICAN [Concomitant]
     Active Substance: EVEROLIMUS
     Indication: KIDNEY TRANSPLANT REJECTION
     Route: 048
     Dates: start: 20171201
  17. ALLOPURINOL. [Concomitant]
     Active Substance: ALLOPURINOL
     Indication: HYPERURICAEMIA
     Route: 048
     Dates: start: 20171208
  18. TACROLIMUS HYDRATE [Concomitant]
     Active Substance: TACROLIMUS
     Indication: KIDNEY TRANSPLANT REJECTION
     Route: 048
     Dates: start: 20171201, end: 20171218
  19. BASILIXIMAB [Concomitant]
     Active Substance: BASILIXIMAB
     Indication: KIDNEY TRANSPLANT REJECTION
     Route: 042
     Dates: start: 20171214, end: 20171214
  20. LOXOPROFEN NA [Concomitant]
     Active Substance: LOXOPROFEN SODIUM
     Indication: PREMEDICATION
     Route: 048
     Dates: start: 20171120, end: 20171120
  21. FEXOFENADINE HYDROCHLORIDE. [Concomitant]
     Active Substance: FEXOFENADINE HYDROCHLORIDE
     Indication: PREMEDICATION
     Route: 048
     Dates: start: 20171120, end: 20171120
  22. PERSANTINE [Concomitant]
     Active Substance: DIPYRIDAMOLE
     Indication: TUBULOINTERSTITIAL NEPHRITIS
     Route: 048
     Dates: start: 20171208

REACTIONS (2)
  - Hypokalaemia [Recovered/Resolved]
  - Pancytopenia [Recovered/Resolved]

NARRATIVE: CASE EVENT DATE: 20171208
